FAERS Safety Report 10010901 (Version 11)
Quarter: 2016Q3

REPORT INFORMATION
  Report Type: Report from Study
  Country: JP (occurrence: JP)
  Receive Date: 20140314
  Receipt Date: 20160915
  Transmission Date: 20161108
  Serious: Yes (Hospitalization, Other)
  Sender: FDA-Public Use
  Company Number: JP-JNJFOC-20130716605

PATIENT
  Age: 54 Year
  Sex: Male

DRUGS (111)
  1. NEUZYM [Concomitant]
     Active Substance: LYSOZYME HYDROCHLORIDE
     Indication: SINUSITIS
     Route: 048
     Dates: start: 20150313, end: 20150624
  2. ALLERMIST [Concomitant]
     Active Substance: FLUTICASONE FUROATE
     Indication: SINUSITIS
     Route: 045
     Dates: start: 20150313
  3. VALGANCICLOVIR HYDROCHLORIDE. [Suspect]
     Active Substance: VALGANCICLOVIR HYDROCHLORIDE
     Indication: CYTOMEGALOVIRUS INFECTION
     Route: 048
     Dates: start: 20110929, end: 20111004
  4. ZITHROMAC [Suspect]
     Active Substance: AZITHROMYCIN DIHYDRATE
     Indication: PROPHYLAXIS
     Route: 065
     Dates: start: 20110305, end: 20111227
  5. CRAVIT [Concomitant]
     Active Substance: LEVOFLOXACIN
     Indication: INFECTION
     Route: 048
     Dates: start: 20110331, end: 20110511
  6. CRAVIT [Concomitant]
     Active Substance: LEVOFLOXACIN
     Indication: LYMPHADENITIS
     Route: 048
     Dates: start: 20110914, end: 20110919
  7. FLUCONAZOLE. [Concomitant]
     Active Substance: FLUCONAZOLE
     Indication: LYMPHADENITIS
     Route: 048
     Dates: start: 20111012, end: 20111228
  8. OMEPRAZOLE. [Concomitant]
     Active Substance: OMEPRAZOLE
     Indication: NAUSEA
     Route: 048
     Dates: start: 20110122, end: 20120128
  9. LOXONIN [Concomitant]
     Active Substance: LOXOPROFEN SODIUM
     Indication: PERIARTHRITIS
     Route: 048
     Dates: start: 20110727, end: 20110928
  10. LOXONIN [Concomitant]
     Active Substance: LOXOPROFEN SODIUM
     Indication: BACK PAIN
     Route: 048
     Dates: start: 20120222, end: 20130123
  11. CALONAL [Concomitant]
     Active Substance: ACETAMINOPHEN
     Indication: HEADACHE
     Route: 048
     Dates: start: 20130510, end: 20130721
  12. METGLUCO [Concomitant]
     Active Substance: METFORMIN HYDROCHLORIDE
     Indication: DIABETES MELLITUS
     Route: 048
     Dates: start: 20140418, end: 20140725
  13. METHYCOBAL [Concomitant]
     Active Substance: METHYLCOBALAMIN
     Indication: DIABETIC NEUROPATHY
     Route: 048
     Dates: start: 20140408
  14. LYRICA [Concomitant]
     Active Substance: PREGABALIN
     Indication: DIABETIC NEUROPATHY
     Route: 048
     Dates: start: 20140408, end: 20140516
  15. VALGANCICLOVIR HYDROCHLORIDE. [Suspect]
     Active Substance: VALGANCICLOVIR HYDROCHLORIDE
     Indication: CYTOMEGALOVIRUS INFECTION
     Route: 048
     Dates: start: 20110727, end: 20110914
  16. ZITHROMAC [Suspect]
     Active Substance: AZITHROMYCIN DIHYDRATE
     Indication: ATYPICAL MYCOBACTERIAL INFECTION
     Route: 065
     Dates: start: 20111228, end: 20130123
  17. ZITHROMAC [Suspect]
     Active Substance: AZITHROMYCIN DIHYDRATE
     Indication: ATYPICAL MYCOBACTERIAL INFECTION
     Route: 065
     Dates: start: 20110305, end: 20111227
  18. CRAVIT [Concomitant]
     Active Substance: LEVOFLOXACIN
     Indication: PROPHYLAXIS
     Route: 048
     Dates: start: 20110914, end: 20110919
  19. CRAVIT [Concomitant]
     Active Substance: LEVOFLOXACIN
     Indication: PNEUMONIA
     Route: 048
     Dates: start: 20110331, end: 20110511
  20. TALION [Concomitant]
     Active Substance: BEPOTASTINE
     Indication: SEBORRHOEIC DERMATITIS
     Route: 048
     Dates: start: 20110107, end: 20110218
  21. FLUCONAZOLE. [Concomitant]
     Active Substance: FLUCONAZOLE
     Indication: OESOPHAGEAL CANDIDIASIS
     Route: 048
     Dates: start: 20111012, end: 20111228
  22. LOXONIN [Concomitant]
     Active Substance: LOXOPROFEN SODIUM
     Indication: BACK PAIN
     Route: 048
     Dates: start: 20110622, end: 20110726
  23. REBAMIPIDE [Concomitant]
     Active Substance: REBAMIPIDE
     Indication: HEADACHE
     Route: 048
     Dates: start: 20120222, end: 20130123
  24. NEUTROGIN [Concomitant]
     Active Substance: LENOGRASTIM
     Indication: CYTOPENIA
     Route: 065
     Dates: start: 20110222, end: 20110303
  25. NEUTROGIN [Concomitant]
     Active Substance: LENOGRASTIM
     Indication: CYTOPENIA
     Route: 065
     Dates: start: 20110327, end: 20110427
  26. EPADEL S [Concomitant]
     Active Substance: ICOSAPENT ETHYL
     Indication: HYPERLIPIDAEMIA
     Route: 048
     Dates: start: 20140620
  27. ANTEBATE [Concomitant]
     Active Substance: BETAMETHASONE DIPROPIONATE
     Indication: EOSINOPHILIC PUSTULOSIS
     Route: 061
     Dates: start: 20140829, end: 20150401
  28. MUCODYNE [Concomitant]
     Active Substance: CARBOCYSTEINE
     Indication: SINUSITIS
     Route: 048
     Dates: start: 20150313
  29. VALGANCICLOVIR HYDROCHLORIDE. [Suspect]
     Active Substance: VALGANCICLOVIR HYDROCHLORIDE
     Indication: CYTOMEGALOVIRUS INFECTION
     Route: 048
     Dates: start: 20111209, end: 20111228
  30. ZITHROMAC [Suspect]
     Active Substance: AZITHROMYCIN DIHYDRATE
     Indication: PROPHYLAXIS
     Route: 065
     Dates: start: 20111228, end: 20130123
  31. ESANBUTOL [Suspect]
     Active Substance: ETHAMBUTOL HYDROCHLORIDE
     Indication: ATYPICAL MYCOBACTERIAL INFECTION
     Route: 048
     Dates: start: 20121228, end: 20130123
  32. CEPHADOL [Concomitant]
     Active Substance: DIPHENIDOL HYDROCHLORIDE
     Indication: DIZZINESS
     Route: 048
     Dates: start: 20110107, end: 20120128
  33. MYONAL [Concomitant]
     Active Substance: EPERISONE HYDROCHLORIDE
     Indication: BACK PAIN
     Route: 048
     Dates: start: 20110126, end: 20110223
  34. LOXONIN [Concomitant]
     Active Substance: LOXOPROFEN SODIUM
     Indication: PERIARTHRITIS
     Route: 048
     Dates: start: 20130227, end: 20130428
  35. ALBUMIN TANNATE [Concomitant]
     Active Substance: ALBUMIN BOVINE\TANNIC ACID
     Indication: DIARRHOEA
     Route: 048
     Dates: start: 20110129, end: 20110220
  36. ROHYPNOL [Concomitant]
     Active Substance: FLUNITRAZEPAM
     Indication: INSOMNIA
     Route: 048
     Dates: start: 20110608, end: 20111114
  37. LOPEMIN [Concomitant]
     Active Substance: LOPERAMIDE HYDROCHLORIDE
     Indication: DIARRHOEA
     Route: 048
     Dates: start: 20110122, end: 20110223
  38. KINDAVATE [Concomitant]
     Active Substance: CLOBETASONE BUTYRATE
     Indication: EOSINOPHILIC PUSTULOSIS
     Route: 061
     Dates: start: 20140704, end: 20150401
  39. VALGANCICLOVIR HYDROCHLORIDE. [Suspect]
     Active Substance: VALGANCICLOVIR HYDROCHLORIDE
     Indication: CYTOMEGALOVIRUS INFECTION
     Route: 048
     Dates: start: 20110219, end: 20110726
  40. VALGANCICLOVIR HYDROCHLORIDE. [Suspect]
     Active Substance: VALGANCICLOVIR HYDROCHLORIDE
     Indication: CYTOMEGALOVIRUS INFECTION
     Route: 048
     Dates: start: 20111019, end: 20111125
  41. MYCOBUTIN [Suspect]
     Active Substance: RIFABUTIN
     Indication: ATYPICAL MYCOBACTERIAL INFECTION
     Route: 048
     Dates: start: 20110305, end: 20111227
  42. BAKTAR [Suspect]
     Active Substance: SULFAMETHOXAZOLE\TRIMETHOPRIM
     Indication: ANTIFUNGAL PROPHYLAXIS
     Route: 048
     Dates: start: 20110121, end: 20130227
  43. FOSAMAC [Suspect]
     Active Substance: ALENDRONATE SODIUM
     Indication: OSTEOPOROSIS
     Route: 048
     Dates: start: 20120815, end: 20130123
  44. KEFRAL [Concomitant]
     Active Substance: CEFACLOR
     Indication: LYMPHADENITIS
     Route: 048
     Dates: start: 20111105, end: 20111118
  45. ZOSYN [Concomitant]
     Active Substance: PIPERACILLIN SODIUM\TAZOBACTAM SODIUM
     Indication: LYMPHADENITIS
     Route: 042
     Dates: start: 20111024, end: 20111104
  46. CRAVIT [Concomitant]
     Active Substance: LEVOFLOXACIN
     Indication: INFECTION
     Route: 048
     Dates: start: 20110914, end: 20110919
  47. CRAVIT [Concomitant]
     Active Substance: LEVOFLOXACIN
     Indication: LYMPHADENITIS
     Route: 048
     Dates: start: 20111125, end: 20111228
  48. ATOVAQUONE. [Concomitant]
     Active Substance: ATOVAQUONE
     Indication: ANTIFUNGAL PROPHYLAXIS
     Route: 048
     Dates: start: 20130227, end: 20130621
  49. SAWACILLIN [Concomitant]
     Active Substance: AMOXICILLIN
     Indication: SYPHILIS
     Route: 048
     Dates: start: 20110205, end: 20110215
  50. SAWACILLIN [Concomitant]
     Active Substance: AMOXICILLIN
     Indication: SYPHILIS
     Route: 048
     Dates: start: 20110107, end: 20110203
  51. GANCICLOVIR. [Concomitant]
     Active Substance: GANCICLOVIR
     Indication: CYTOMEGALOVIRUS VIRAEMIA
     Route: 041
     Dates: start: 20121005, end: 20121007
  52. FLUCONAZOLE. [Concomitant]
     Active Substance: FLUCONAZOLE
     Indication: OESOPHAGEAL CANDIDIASIS
     Route: 048
     Dates: start: 20110120, end: 20110224
  53. GASMOTIN [Concomitant]
     Active Substance: MOSAPRIDE CITRATE
     Indication: NAUSEA
     Route: 048
     Dates: start: 20110302, end: 20120127
  54. MYSLEE [Concomitant]
     Active Substance: ZOLPIDEM TARTRATE
     Indication: INSOMNIA
     Route: 048
     Dates: start: 20110107, end: 20111114
  55. FAROM [Concomitant]
     Active Substance: FAROPENEM SODIUM
     Indication: LYMPHADENITIS
     Route: 048
     Dates: start: 20110920, end: 20110927
  56. NEUTROGIN [Concomitant]
     Active Substance: LENOGRASTIM
     Indication: CYTOPENIA
     Route: 065
     Dates: start: 20111006, end: 20111014
  57. NEUTROGIN [Concomitant]
     Active Substance: LENOGRASTIM
     Indication: CYTOPENIA
     Route: 065
     Dates: start: 20111031, end: 20111107
  58. VALGANCICLOVIR HYDROCHLORIDE. [Suspect]
     Active Substance: VALGANCICLOVIR HYDROCHLORIDE
     Indication: CYTOMEGALOVIRUS INFECTION
     Route: 048
     Dates: start: 20110109, end: 20110218
  59. TRUVADA [Suspect]
     Active Substance: EMTRICITABINE\TENOFOVIR DISOPROXIL FUMARATE
     Indication: HIV INFECTION
     Route: 048
     Dates: start: 20110121, end: 20120110
  60. ESANBUTOL [Suspect]
     Active Substance: ETHAMBUTOL HYDROCHLORIDE
     Indication: ATYPICAL MYCOBACTERIAL INFECTION
     Route: 048
     Dates: start: 20110305, end: 20121227
  61. CRAVIT [Concomitant]
     Active Substance: LEVOFLOXACIN
     Indication: PROPHYLAXIS
     Route: 048
     Dates: start: 20111125, end: 20111228
  62. CRAVIT [Concomitant]
     Active Substance: LEVOFLOXACIN
     Indication: INFECTION
     Route: 048
     Dates: start: 20111125, end: 20111228
  63. CRAVIT [Concomitant]
     Active Substance: LEVOFLOXACIN
     Indication: LYMPHADENITIS
     Route: 048
     Dates: start: 20110331, end: 20110511
  64. RISUMIC [Concomitant]
     Active Substance: AMEZINIUM METILSULFATE
     Indication: HYPOTENSION
     Route: 048
     Dates: start: 20110108, end: 20120127
  65. MAGLAX [Concomitant]
     Active Substance: MAGNESIUM OXIDE
     Indication: CONSTIPATION PROPHYLAXIS
     Route: 048
     Dates: start: 20110110, end: 20110117
  66. LOXONIN [Concomitant]
     Active Substance: LOXOPROFEN SODIUM
     Indication: BACK PAIN
     Route: 048
     Dates: start: 20130227, end: 20130428
  67. FOSCAVIR [Concomitant]
     Active Substance: FOSCARNET SODIUM
     Indication: CYTOMEGALOVIRUS VIRAEMIA
     Route: 041
     Dates: start: 20111007, end: 20111018
  68. FOLIAMIN [Concomitant]
     Active Substance: FOLIC ACID
     Indication: VITAMIN SUPPLEMENTATION
     Route: 048
     Dates: start: 20111019, end: 20120203
  69. REBAMIPIDE [Concomitant]
     Active Substance: REBAMIPIDE
     Indication: PROPHYLAXIS
     Route: 048
     Dates: start: 20120222, end: 20130123
  70. LOPEMIN [Concomitant]
     Active Substance: LOPERAMIDE HYDROCHLORIDE
     Indication: DIARRHOEA
     Route: 048
     Dates: start: 20110622, end: 20110928
  71. NAUZELIN [Concomitant]
     Active Substance: DOMPERIDONE
     Indication: PROPHYLAXIS
     Route: 048
     Dates: start: 20110206, end: 20111114
  72. CEFEPIME DIHYDROCHLORIDE [Concomitant]
     Active Substance: CEFEPIME HYDROCHLORIDE
     Indication: LYMPHADENITIS
     Route: 065
     Dates: start: 20110928, end: 20111011
  73. LIPIDIL [Concomitant]
     Active Substance: FENOFIBRATE
     Indication: HYPERLIPIDAEMIA
     Route: 048
     Dates: start: 20130621, end: 20130816
  74. PREZISTA [Suspect]
     Active Substance: DARUNAVIR ETHANOLATE
     Indication: HIV INFECTION
     Route: 048
     Dates: start: 20110121, end: 20150115
  75. ZITHROMAC [Suspect]
     Active Substance: AZITHROMYCIN DIHYDRATE
     Indication: ATYPICAL MYCOBACTERIAL INFECTION
     Route: 065
     Dates: start: 20110107, end: 20110304
  76. ZITHROMAC [Suspect]
     Active Substance: AZITHROMYCIN DIHYDRATE
     Indication: PROPHYLAXIS
     Route: 065
     Dates: start: 20110107, end: 20110304
  77. BAKTAR [Suspect]
     Active Substance: SULFAMETHOXAZOLE\TRIMETHOPRIM
     Indication: ANTIFUNGAL PROPHYLAXIS
     Route: 048
     Dates: start: 20110107, end: 20110120
  78. FLUCONAZOLE. [Concomitant]
     Active Substance: FLUCONAZOLE
     Indication: LYMPHADENITIS
     Route: 048
     Dates: start: 20110120, end: 20110224
  79. FLUCONAZOLE. [Concomitant]
     Active Substance: FLUCONAZOLE
     Indication: LYMPHADENITIS
     Route: 048
     Dates: start: 20110928, end: 20111011
  80. LOXONIN [Concomitant]
     Active Substance: LOXOPROFEN SODIUM
     Indication: PERIARTHRITIS
     Route: 048
     Dates: start: 20110622, end: 20110726
  81. MYSLEE [Concomitant]
     Active Substance: ZOLPIDEM TARTRATE
     Indication: INSOMNIA
     Route: 048
     Dates: start: 20120307
  82. REBAMIPIDE [Concomitant]
     Active Substance: REBAMIPIDE
     Indication: HEADACHE
     Route: 048
     Dates: start: 20120227, end: 20130428
  83. NEUTROGIN [Concomitant]
     Active Substance: LENOGRASTIM
     Indication: CYTOPENIA
     Route: 065
     Dates: start: 20110622, end: 20110831
  84. NEUTROGIN [Concomitant]
     Active Substance: LENOGRASTIM
     Indication: CYTOPENIA
     Route: 065
     Dates: start: 20111217, end: 20111226
  85. GLUFAST [Concomitant]
     Active Substance: MITIGLINIDE
     Indication: DIABETES MELLITUS
     Route: 048
     Dates: start: 20150213, end: 20150401
  86. EPZICOM [Suspect]
     Active Substance: ABACAVIR SULFATE\LAMIVUDINE
     Indication: HIV INFECTION
     Route: 048
     Dates: start: 20120111, end: 20150508
  87. BEZATOL SR [Suspect]
     Active Substance: BEZAFIBRATE
     Indication: HYPERLIPIDAEMIA
     Route: 048
     Dates: start: 20121212, end: 20130123
  88. CRAVIT [Concomitant]
     Active Substance: LEVOFLOXACIN
     Indication: PNEUMONIA
     Route: 048
     Dates: start: 20111125, end: 20111228
  89. CRAVIT [Concomitant]
     Active Substance: LEVOFLOXACIN
     Indication: PNEUMONIA
     Route: 048
     Dates: start: 20110914, end: 20110919
  90. ENTERONON-R [Concomitant]
     Active Substance: PROBIOTICS NOS
     Indication: DIARRHOEA
     Route: 048
     Dates: start: 20110120, end: 20110218
  91. LOXONIN [Concomitant]
     Active Substance: LOXOPROFEN SODIUM
     Indication: PERIARTHRITIS
     Route: 048
     Dates: start: 20110126, end: 20110323
  92. LOXONIN [Concomitant]
     Active Substance: LOXOPROFEN SODIUM
     Indication: PERIARTHRITIS
     Route: 048
     Dates: start: 20120222, end: 20130123
  93. LOXONIN [Concomitant]
     Active Substance: LOXOPROFEN SODIUM
     Indication: BACK PAIN
     Route: 048
     Dates: start: 20110727, end: 20110928
  94. MARZULENE-S [Concomitant]
     Active Substance: SODIUM GUALENATE
     Indication: NAUSEA
     Route: 048
     Dates: start: 20110511, end: 20111110
  95. REBAMIPIDE [Concomitant]
     Active Substance: REBAMIPIDE
     Indication: HEADACHE
     Route: 048
     Dates: start: 20130510, end: 20130721
  96. REBAMIPIDE [Concomitant]
     Active Substance: REBAMIPIDE
     Indication: PROPHYLAXIS
     Route: 048
     Dates: start: 20130510, end: 20130721
  97. REBAMIPIDE [Concomitant]
     Active Substance: REBAMIPIDE
     Indication: PROPHYLAXIS
     Route: 048
     Dates: start: 20120227, end: 20130428
  98. NEUTROGIN [Concomitant]
     Active Substance: LENOGRASTIM
     Indication: CYTOPENIA
     Route: 065
     Dates: start: 20120101, end: 20120102
  99. CEFEPIME DIHYDROCHLORIDE [Concomitant]
     Active Substance: CEFEPIME HYDROCHLORIDE
     Indication: MYCOBACTERIUM AVIUM COMPLEX INFECTION
     Route: 065
     Dates: start: 20110928, end: 20111011
  100. CEFEPIME DIHYDROCHLORIDE [Concomitant]
     Active Substance: CEFEPIME HYDROCHLORIDE
     Indication: LYMPHADENITIS
     Route: 065
     Dates: start: 20120203, end: 20120205
  101. INTEBAN [Concomitant]
     Active Substance: INDOMETHACIN
     Indication: EOSINOPHILIC PUSTULOSIS
     Route: 061
     Dates: start: 20140704, end: 20150401
  102. TIVICAY [Concomitant]
     Active Substance: DOLUTEGRAVIR SODIUM
     Indication: HIV INFECTION
     Route: 048
     Dates: start: 20150116, end: 20150508
  103. VALGANCICLOVIR HYDROCHLORIDE. [Suspect]
     Active Substance: VALGANCICLOVIR HYDROCHLORIDE
     Indication: CYTOMEGALOVIRUS INFECTION
     Route: 048
     Dates: start: 20120118, end: 20120122
  104. NORVIR [Suspect]
     Active Substance: RITONAVIR
     Indication: HIV INFECTION
     Route: 065
     Dates: start: 20110121, end: 20150115
  105. CRAVIT [Concomitant]
     Active Substance: LEVOFLOXACIN
     Indication: PROPHYLAXIS
     Route: 048
     Dates: start: 20110331, end: 20110511
  106. VFEND [Concomitant]
     Active Substance: VORICONAZOLE
     Indication: OESOPHAGEAL CANDIDIASIS
     Route: 048
     Dates: start: 20110114, end: 20110119
  107. FLUCONAZOLE. [Concomitant]
     Active Substance: FLUCONAZOLE
     Indication: OESOPHAGEAL CANDIDIASIS
     Route: 048
     Dates: start: 20110928, end: 20111011
  108. LOXONIN [Concomitant]
     Active Substance: LOXOPROFEN SODIUM
     Indication: BACK PAIN
     Route: 048
     Dates: start: 20110126, end: 20110323
  109. NEUTROGIN [Concomitant]
     Active Substance: LENOGRASTIM
     Indication: CYTOPENIA
     Route: 065
     Dates: start: 20111109, end: 20111201
  110. CEFEPIME DIHYDROCHLORIDE [Concomitant]
     Active Substance: CEFEPIME HYDROCHLORIDE
     Indication: MYCOBACTERIUM AVIUM COMPLEX INFECTION
     Route: 065
     Dates: start: 20120203, end: 20120205
  111. ALLOPURINOL. [Concomitant]
     Active Substance: ALLOPURINOL
     Indication: HYPERURICAEMIA
     Route: 048
     Dates: start: 20131108

REACTIONS (17)
  - Back pain [Recovering/Resolving]
  - Cytopenia [Recovering/Resolving]
  - Osteoporosis [Recovering/Resolving]
  - Diabetes mellitus [Not Recovered/Not Resolved]
  - Periarthritis [Recovering/Resolving]
  - Eosinophilic pustular folliculitis [Not Recovered/Not Resolved]
  - Sinusitis [Not Recovered/Not Resolved]
  - Diarrhoea [Recovering/Resolving]
  - Diabetic neuropathy [Not Recovered/Not Resolved]
  - Mycobacterium avium complex infection [Recovering/Resolving]
  - Renal impairment [Not Recovered/Not Resolved]
  - Folate deficiency [Recovered/Resolved]
  - Hyperlipidaemia [Not Recovered/Not Resolved]
  - Hyperuricaemia [Not Recovered/Not Resolved]
  - Lymphadenitis [Recovering/Resolving]
  - Nausea [Recovering/Resolving]
  - Pneumonia [Recovering/Resolving]

NARRATIVE: CASE EVENT DATE: 2011
